FAERS Safety Report 10861192 (Version 1)
Quarter: 2015Q1

REPORT INFORMATION
  Report Type: Report from Study
  Country: HR (occurrence: HR)
  Receive Date: 20150224
  Receipt Date: 20150224
  Transmission Date: 20150721
  Serious: Yes (Other)
  Sender: FDA-Public Use
  Company Number: HR-ROCHE-1538727

PATIENT

DRUGS (2)
  1. MITOMYCIN C [Suspect]
     Active Substance: MITOMYCIN
     Indication: BREAST CANCER METASTATIC
     Route: 042
  2. CAPECITABINE. [Suspect]
     Active Substance: CAPECITABINE
     Indication: BREAST CANCER METASTATIC
     Route: 048

REACTIONS (10)
  - Thrombocytopenia [Unknown]
  - Leukopenia [Unknown]
  - Palmar-plantar erythrodysaesthesia syndrome [Unknown]
  - Pulmonary embolism [Unknown]
  - Central nervous system haemorrhage [Unknown]
  - Anaemia [Unknown]
  - Granulocytopenia [Unknown]
  - Nausea [Unknown]
  - Vomiting [Unknown]
  - Haemolytic uraemic syndrome [Recovered/Resolved]
